FAERS Safety Report 5545371-8 (Version None)
Quarter: 2007Q4

REPORT INFORMATION
  Report Type: 
  Country: None (occurrence: None)
  Receive Date: 20071211
  Receipt Date: 20071205
  Transmission Date: 20080405
  Serious: Yes (Disabling, Other)
  Sender: FDA-Public Use
  Company Number: FR-BRISTOL-MYERS SQUIBB COMPANY-14006936

PATIENT
  Age: 39 Year
  Sex: Male

DRUGS (3)
  1. REYATAZ [Suspect]
     Indication: ACQUIRED IMMUNODEFICIENCY SYNDROME
     Dosage: 2 DOSAGE FORM = 2 TABLETS.
     Dates: start: 20060701
  2. TRUVADA [Concomitant]
     Dates: start: 20060701
  3. RITONAVIR [Concomitant]
     Dates: start: 20060701

REACTIONS (2)
  - BLINDNESS [None]
  - CHORIORETINITIS [None]
